FAERS Safety Report 24719976 (Version 1)
Quarter: 2024Q4

REPORT INFORMATION
  Report Type: Report from Study
  Country: DE (occurrence: DE)
  Receive Date: 20241211
  Receipt Date: 20241211
  Transmission Date: 20250115
  Serious: No
  Sender: ROCHE
  Company Number: DE-ML39632-2378415-0

PATIENT
  Age: 36 Year
  Sex: Female
  Weight: 63 kg

DRUGS (4)
  1. OCREVUS [Suspect]
     Active Substance: OCRELIZUMAB
     Indication: Multiple sclerosis
     Route: 042
     Dates: start: 20210914, end: 20210928
  2. OCREVUS [Suspect]
     Active Substance: OCRELIZUMAB
     Route: 042
     Dates: start: 20220322
  3. INTERFERON BETA-1A [Concomitant]
     Active Substance: INTERFERON BETA-1A
     Dates: start: 2013, end: 2015
  4. FINGOLIMOD [Concomitant]
     Active Substance: FINGOLIMOD
     Dates: start: 20160706, end: 20200903

REACTIONS (1)
  - Coronavirus infection [Recovered/Resolved]

NARRATIVE: CASE EVENT DATE: 20241016
